FAERS Safety Report 17195056 (Version 1)
Quarter: 2019Q4

REPORT INFORMATION
  Report Type: Spontaneous
  Country: CN (occurrence: CN)
  Receive Date: 20191224
  Receipt Date: 20191224
  Transmission Date: 20200122
  Serious: Yes (Life-Threatening)
  Sender: FDA-Public Use
  Company Number: CN-ROCHE-2504405

PATIENT
  Age: 81 Year
  Sex: Male
  Weight: 70 kg

DRUGS (2)
  1. ACTILYSE [Suspect]
     Active Substance: ALTEPLASE
     Indication: THROMBOLYSIS
     Route: 041
     Dates: start: 20191124, end: 20191124
  2. ACTILYSE [Suspect]
     Active Substance: ALTEPLASE
     Route: 041
     Dates: start: 20191124, end: 20191124

REACTIONS (5)
  - Altered state of consciousness [Recovering/Resolving]
  - Coma [Recovering/Resolving]
  - Tachypnoea [Recovering/Resolving]
  - Angioedema [Recovering/Resolving]
  - Oxygen saturation decreased [Recovering/Resolving]

NARRATIVE: CASE EVENT DATE: 20191124
